FAERS Safety Report 14124374 (Version 2)
Quarter: 2017Q4

REPORT INFORMATION
  Report Type: Spontaneous
  Country: US (occurrence: US)
  Receive Date: 20171025
  Receipt Date: 20171229
  Transmission Date: 20180321
  Serious: Yes (Hospitalization, Other)
  Sender: FDA-Public Use
  Company Number: US-PFIZER INC-2017456522

PATIENT
  Sex: Female

DRUGS (2)
  1. LYRICA [Suspect]
     Active Substance: PREGABALIN
     Indication: FIBROMYALGIA
     Dosage: 50 MG, DAILY, AT BEDTIME
     Route: 048
  2. LYRICA [Suspect]
     Active Substance: PREGABALIN
     Indication: HEADACHE

REACTIONS (6)
  - Hypotension [Recovered/Resolved]
  - Lip swelling [Recovered/Resolved]
  - Colitis ischaemic [Recovered/Resolved]
  - Angioedema [Unknown]
  - Diarrhoea [Unknown]
  - Swollen tongue [Recovered/Resolved]
